FAERS Safety Report 17702825 (Version 1)
Quarter: 2020Q2

REPORT INFORMATION
  Report Type: Spontaneous
  Country: GB (occurrence: GB)
  Receive Date: 20200424
  Receipt Date: 20200424
  Transmission Date: 20200714
  Serious: Yes (Hospitalization)
  Sender: FDA-Public Use
  Company Number: GB-TEVA-2020-GB-1226062

PATIENT
  Age: 58 Year
  Sex: Male

DRUGS (5)
  1. LUTATHERA [Suspect]
     Active Substance: LUTETIUM OXODOTREOTIDE LU-177
     Dosage: THERAPY END DATE: ASKED BUT UNKNOWN
     Route: 065
     Dates: start: 201807
  2. OCTREOTIDE. [Suspect]
     Active Substance: OCTREOTIDE
     Indication: PANCREATIC NEUROENDOCRINE TUMOUR
     Dosage: THERAPY START DATE AND END DATE: ASKED BUT UNKNOWN
     Route: 042
  3. LUTATHERA [Suspect]
     Active Substance: LUTETIUM OXODOTREOTIDE LU-177
     Indication: PANCREATIC NEUROENDOCRINE TUMOUR
     Dosage: THERAPY END DATE: ASKED BUT UNKNOWN
     Route: 065
     Dates: start: 201907
  4. LUTATHERA [Suspect]
     Active Substance: LUTETIUM OXODOTREOTIDE LU-177
     Dosage: 7.4 GBQ, THERAPY END DATE: ASKED BUT UNKNOWN
     Route: 065
     Dates: start: 201805
  5. LUTATHERA [Suspect]
     Active Substance: LUTETIUM OXODOTREOTIDE LU-177
     Dosage: UNK, THERAPY END DATE: ASKED BUT UNKNOWN
     Route: 065
     Dates: start: 201810

REACTIONS (6)
  - Decreased appetite [Unknown]
  - Pancreatic polypeptide level decreased [Unknown]
  - Lethargy [Unknown]
  - Weight increased [Recovering/Resolving]
  - Diarrhoea [Recovering/Resolving]
  - Quality of life decreased [Recovering/Resolving]
